FAERS Safety Report 17880695 (Version 1)
Quarter: 2020Q2

REPORT INFORMATION
  Report Type: Report from Study
  Country: US (occurrence: US)
  Receive Date: 20200610
  Receipt Date: 20200610
  Transmission Date: 20200714
  Serious: Yes (Other)
  Sender: FDA-Public Use
  Company Number: US-BIOGEN-2020BI00884791

PATIENT
  Sex: Female

DRUGS (1)
  1. TECFIDERA [Suspect]
     Active Substance: DIMETHYL FUMARATE
     Indication: MULTIPLE SCLEROSIS
     Dosage: MAINTENANCE DOSE
     Route: 048
     Dates: start: 20140515

REACTIONS (13)
  - Adrenal mass [Not Recovered/Not Resolved]
  - Nodule [Unknown]
  - Vomiting [Not Recovered/Not Resolved]
  - Product dose omission [Unknown]
  - Irritable bowel syndrome [Not Recovered/Not Resolved]
  - Feeling abnormal [Not Recovered/Not Resolved]
  - Affective disorder [Not Recovered/Not Resolved]
  - Ventricular dysfunction [Recovered/Resolved]
  - Heart rate increased [Recovered/Resolved]
  - Renal disorder [Unknown]
  - Diverticulitis [Unknown]
  - Blood oestrogen decreased [Unknown]
  - Nausea [Not Recovered/Not Resolved]
